FAERS Safety Report 7057788-3 (Version None)
Quarter: 2010Q4

REPORT INFORMATION
  Report Type: 
  Country: None (occurrence: None)
  Receive Date: 20101022
  Receipt Date: 20101011
  Transmission Date: 20110411
  Serious: Yes (Life-Threatening, Hospitalization, Other)
  Sender: FDA-Public Use
  Company Number: US-PFIZER INC-2010107915

PATIENT
  Sex: Female
  Weight: 80.1 kg

DRUGS (9)
  1. DILANTIN [Suspect]
     Indication: CONVULSION
     Dosage: 400 MG, 2X/DAY
     Route: 048
     Dates: start: 20080101, end: 20100815
  2. DILANTIN [Suspect]
     Indication: EPILEPSY
  3. CLONAZEPAM [Concomitant]
     Indication: CONVULSION
     Dosage: UNK
  4. ENALAPRIL MALEATE [Concomitant]
     Indication: HYPERTENSION
  5. ZOLOFT [Concomitant]
  6. ZOCOR [Concomitant]
     Indication: BLOOD CHOLESTEROL INCREASED
  7. COMBIVENT [Concomitant]
  8. SEROQUEL [Concomitant]
  9. ZYPREXA [Concomitant]

REACTIONS (16)
  - AGITATION [None]
  - ANTICONVULSANT DRUG LEVEL INCREASED [None]
  - BACK PAIN [None]
  - BLOOD CHOLESTEROL INCREASED [None]
  - DEHYDRATION [None]
  - DRUG TOXICITY [None]
  - EXTRASYSTOLES [None]
  - HYPERTENSION [None]
  - MALAISE [None]
  - MENTAL STATUS CHANGES [None]
  - PNEUMONIA ASPIRATION [None]
  - PULSE ABSENT [None]
  - RENAL FAILURE ACUTE [None]
  - RENAL IMPAIRMENT [None]
  - RHABDOMYOLYSIS [None]
  - SEPTIC SHOCK [None]
